FAERS Safety Report 20577650 (Version 1)
Quarter: 2022Q1

REPORT INFORMATION
  Report Type: Spontaneous
  Country: US (occurrence: None)
  Receive Date: 20220310
  Receipt Date: 20220310
  Transmission Date: 20220424
  Serious: Yes (Hospitalization)
  Sender: FDA-Public Use
  Company Number: None

PATIENT
  Age: 74 Year
  Sex: Male
  Weight: 198 kg

DRUGS (1)
  1. APIXABAN [Suspect]
     Active Substance: APIXABAN
     Indication: Atrial fibrillation
     Dates: start: 20200419

REACTIONS (7)
  - Gastrointestinal arteriovenous malformation [None]
  - Haemorrhagic arteriovenous malformation [None]
  - Packed red blood cell transfusion [None]
  - Asthenia [None]
  - Fatigue [None]
  - Faeces discoloured [None]
  - Therapy interrupted [None]

NARRATIVE: CASE EVENT DATE: 20220228
